FAERS Safety Report 13790694 (Version 1)
Quarter: 2017Q3

REPORT INFORMATION
  Report Type: Spontaneous
  Country: US (occurrence: US)
  Receive Date: 20170725
  Receipt Date: 20170725
  Transmission Date: 20171127
  Serious: No
  Sender: FDA-Public Use
  Company Number: US-GALDERMA-US17001554

PATIENT
  Age: 83 Day
  Sex: Female
  Weight: 65.32 kg

DRUGS (3)
  1. LANCOME MOISTURIZER WITH SPF [Concomitant]
     Indication: DRY SKIN PROPHYLAXIS
     Route: 061
  2. UNSPECIFIED HEAVY MOISTURIZER [Concomitant]
     Indication: DRY SKIN PROPHYLAXIS
  3. DIFFERIN GEL [Suspect]
     Active Substance: ADAPALENE
     Indication: SKIN WRINKLING
     Dosage: 0.1%
     Route: 061
     Dates: start: 201702

REACTIONS (4)
  - Dry skin [Not Recovered/Not Resolved]
  - Intentional product use issue [Recovered/Resolved]
  - Skin burning sensation [Not Recovered/Not Resolved]
  - Rash macular [Recovering/Resolving]

NARRATIVE: CASE EVENT DATE: 201702
